FAERS Safety Report 17532533 (Version 2)
Quarter: 2020Q1

REPORT INFORMATION
  Report Type: Spontaneous
  Country: US (occurrence: US)
  Receive Date: 20200312
  Receipt Date: 20200316
  Transmission Date: 20200409
  Serious: Yes (Other)
  Sender: FDA-Public Use
  Company Number: US-PFIZER INC-2020100971

PATIENT
  Age: 18 Year
  Sex: Female

DRUGS (1)
  1. PENTAZOCINE LACTATE [Suspect]
     Active Substance: PENTAZOCINE LACTATE
     Dosage: 20 MG, 1X/DAY

REACTIONS (2)
  - Tourette^s disorder [Recovering/Resolving]
  - Drug withdrawal syndrome [Unknown]
